FAERS Safety Report 17314881 (Version 1)
Quarter: 2020Q1

REPORT INFORMATION
  Report Type: Spontaneous
  Country: US (occurrence: US)
  Receive Date: 20200124
  Receipt Date: 20200124
  Transmission Date: 20200409
  Serious: No
  Sender: FDA-Public Use
  Company Number: US-PCCINC-2019-PEL-000215

PATIENT

DRUGS (2)
  1. GABLOFEN [Suspect]
     Active Substance: BACLOFEN
     Dosage: UNK
  2. GABLOFEN [Suspect]
     Active Substance: BACLOFEN
     Indication: MUSCLE SPASTICITY
     Dosage: 931 MICROGRAM PER DAY
     Route: 037

REACTIONS (5)
  - Incorrect dose administered by device [Recovered/Resolved]
  - Implant site infection [Recovered/Resolved]
  - Device infusion issue [Recovered/Resolved]
  - Device inversion [Recovered/Resolved]
  - Device kink [Recovered/Resolved]

NARRATIVE: CASE EVENT DATE: 20190621
